FAERS Safety Report 6908581-0 (Version None)
Quarter: 2010Q3

REPORT INFORMATION
  Report Type: 
  Country: None (occurrence: None)
  Receive Date: 20100708
  Receipt Date: 20090416
  Transmission Date: 20110219
  Serious: Yes (Other)
  Sender: FDA-Public Use
  Company Number: 2008012158

PATIENT
  Age: 78 Year
  Sex: Male
  Weight: 50 kg

DRUGS (2)
  1. CHANTIX [Suspect]
     Indication: SMOKING CESSATION THERAPY
     Dosage: ORAL
     Route: 048
     Dates: start: 20071201, end: 20071201
  2. ADVAIR DISKUS 100/50 [Concomitant]

REACTIONS (3)
  - ABNORMAL DREAMS [None]
  - SUICIDAL IDEATION [None]
  - WEIGHT INCREASED [None]
